FAERS Safety Report 4944605-8 (Version None)
Quarter: 2006Q1

REPORT INFORMATION
  Report Type: 
  Country: None (occurrence: None)
  Receive Date: 20060315
  Receipt Date: 20050616
  Transmission Date: 20060701
  Serious: Yes (Death)
  Sender: FDA-Public Use
  Company Number: FR-ROCHE-407858

PATIENT
  Age: 27 Year
  Sex: Male

DRUGS (4)
  1. VALIUM [Suspect]
     Indication: DRUG USE FOR UNKNOWN INDICATION
     Route: 048
     Dates: start: 20031013
  2. STILNOX [Suspect]
     Indication: DRUG USE FOR UNKNOWN INDICATION
     Route: 048
     Dates: start: 20031013
  3. METHADONE [Concomitant]
     Dosage: INDICATION REPORTED AS OPIOID REPLACEMENT. DOSAGE REGIMEN REPORTED AS 40-20-40 A DAY.
     Route: 048
     Dates: start: 20031013
  4. THERALENE [Concomitant]
     Dosage: DOSING REGIMEN REPORTED AS 10 A DAY.
     Route: 048
     Dates: start: 20031013

REACTIONS (1)
  - COMPLETED SUICIDE [None]
